FAERS Safety Report 20459844 (Version 6)
Quarter: 2022Q3

REPORT INFORMATION
  Report Type: Other
  Country: CA (occurrence: CA)
  Receive Date: 20220211
  Receipt Date: 20220809
  Transmission Date: 20221026
  Serious: Yes (Other)
  Sender: FDA-Public Use
  Company Number: CA-002147023-NVSC2022CA025991

PATIENT
  Sex: Male
  Weight: 79.365 kg

DRUGS (7)
  1. RANIBIZUMAB [Suspect]
     Active Substance: RANIBIZUMAB
     Indication: Neovascular age-related macular degeneration
     Dosage: 0.5 MG, PREFILLED SYRINGE, LEFT EYE
     Route: 065
     Dates: start: 20211010
  2. RANIBIZUMAB [Suspect]
     Active Substance: RANIBIZUMAB
     Dosage: 0.5 MG, PREFILLED SYRINGE, LEFT EYE
     Route: 065
     Dates: start: 20211108
  3. RANIBIZUMAB [Suspect]
     Active Substance: RANIBIZUMAB
     Dosage: 0.5 MG, PREFILLED SYRINGE, LEFT EYE
     Route: 065
     Dates: start: 20211206
  4. RANIBIZUMAB [Suspect]
     Active Substance: RANIBIZUMAB
     Dosage: 0.5 MG, PREFILLED SYRINGE, LEFT EYE
     Route: 065
     Dates: start: 20220103, end: 20220131
  5. RANIBIZUMAB [Suspect]
     Active Substance: RANIBIZUMAB
     Dosage: 0.5 MG, PREFILLED SYRINGE, LEFT EYE
     Route: 065
     Dates: start: 20220103, end: 20220103
  6. EYLEA [Suspect]
     Active Substance: AFLIBERCEPT
     Indication: Neovascular age-related macular degeneration
     Route: 031
     Dates: start: 20220131
  7. EYLEA [Suspect]
     Active Substance: AFLIBERCEPT
     Indication: Neovascular age-related macular degeneration

REACTIONS (2)
  - Drug ineffective [Unknown]
  - Condition aggravated [Not Recovered/Not Resolved]

NARRATIVE: CASE EVENT DATE: 20220131
